FAERS Safety Report 4519158-9 (Version None)
Quarter: 2004Q4

REPORT INFORMATION
  Report Type: 
  Country: None (occurrence: None)
  Receive Date: 20041201
  Receipt Date: 20041117
  Transmission Date: 20050328
  Serious: Yes (Other)
  Sender: FDA-Public Use
  Company Number: 200410323

PATIENT
  Age: 63 Year
  Sex: Female

DRUGS (1)
  1. LUMIGAN [Suspect]
     Indication: OPEN ANGLE GLAUCOMA
     Dates: start: 20040122, end: 20041021

REACTIONS (1)
  - GRAND MAL CONVULSION [None]
